FAERS Safety Report 15456013 (Version 1)
Quarter: 2018Q4

REPORT INFORMATION
  Report Type: Report from Study
  Country: US (occurrence: US)
  Receive Date: 20181002
  Receipt Date: 20181002
  Transmission Date: 20190204
  Serious: Yes (Other)
  Sender: FDA-Public Use
  Company Number: US-SA-2018SA257727

PATIENT
  Age: 64 Year
  Sex: Female

DRUGS (8)
  1. INSULIN GLARGINE [Suspect]
     Active Substance: INSULIN GLARGINE
     Indication: TYPE 2 DIABETES MELLITUS
     Dosage: 40 U, QD
     Route: 058
  2. INSULIN GLULISINE [Suspect]
     Active Substance: INSULIN GLULISINE
     Indication: TYPE 2 DIABETES MELLITUS
     Dosage: 4 U, TID
     Route: 058
     Dates: start: 201805, end: 201806
  3. VICTOZA [Concomitant]
     Active Substance: LIRAGLUTIDE
     Dosage: UNK
     Dates: start: 201806
  4. GLIPIZIDE. [Concomitant]
     Active Substance: GLIPIZIDE
  5. INSULIN GLARGINE [Suspect]
     Active Substance: INSULIN GLARGINE
     Dosage: 60 U, QD
     Route: 058
  6. INSULIN GLULISINE [Suspect]
     Active Substance: INSULIN GLULISINE
     Dosage: UNK
  7. INSULIN GLARGINE [Suspect]
     Active Substance: INSULIN GLARGINE
     Dosage: 30 U, QD
  8. VICTOZA [Concomitant]
     Active Substance: LIRAGLUTIDE

REACTIONS (10)
  - Blood glucose decreased [Recovered/Resolved]
  - Overdose [Unknown]
  - Intentional dose omission [Unknown]
  - Viral myocarditis [Not Recovered/Not Resolved]
  - Organ failure [Not Recovered/Not Resolved]
  - Product dose omission [Unknown]
  - Therapeutic response decreased [Unknown]
  - Product storage error [Unknown]
  - Cardiac failure [Not Recovered/Not Resolved]
  - Drug ineffective [Unknown]

NARRATIVE: CASE EVENT DATE: 201801
